FAERS Safety Report 7878563-3 (Version None)
Quarter: 2011Q4

REPORT INFORMATION
  Report Type: 
  Country: None (occurrence: None)
  Receive Date: 20111014
  Receipt Date: 20110727
  Transmission Date: 20120403
  Serious: Yes (Other)
  Sender: FDA-Public Use
  Company Number: 1000022542

PATIENT
  Age: 57 Year
  Sex: Female

DRUGS (3)
  1. HALDOL (HALOPERIDOL) (HALOPERIDOL) [Concomitant]
  2. LEXAPRO [Suspect]
     Indication: DEPRESSION
     Dosage: 20 MG (20 MG, 1 IN 1 D), ORAL
     Route: 048
     Dates: start: 20100101, end: 20110101
  3. NEXIUM [Concomitant]

REACTIONS (1)
  - WEIGHT INCREASED [None]
